FAERS Safety Report 12499224 (Version 1)
Quarter: 2016Q2

REPORT INFORMATION
  Report Type: Spontaneous
  Country: US (occurrence: None)
  Receive Date: 20160624
  Receipt Date: 20160624
  Transmission Date: 20160815
  Serious: Yes (Other)
  Sender: FDA-Public Use
  Company Number: None

PATIENT
  Age: 55 Year
  Sex: Female
  Weight: 99.79 kg

DRUGS (7)
  1. FLUOXETINE [Concomitant]
     Active Substance: FLUOXETINE HYDROCHLORIDE
  2. ABILIFY [Suspect]
     Active Substance: ARIPIPRAZOLE
     Indication: MENTAL DISORDER
     Dosage: 30 PILLS
     Route: 048
     Dates: start: 20100914, end: 20160320
  3. PANTOPRAZOLE [Concomitant]
     Active Substance: PANTOPRAZOLE SODIUM
  4. MELOXICAM. [Concomitant]
     Active Substance: MELOXICAM
  5. LISINOPRIL. [Concomitant]
     Active Substance: LISINOPRIL
  6. QUETIAPINE. [Concomitant]
     Active Substance: QUETIAPINE
  7. SIMVASTATIN. [Concomitant]
     Active Substance: SIMVASTATIN

REACTIONS (3)
  - Compulsive shopping [None]
  - Anxiety [None]
  - Gambling disorder [None]

NARRATIVE: CASE EVENT DATE: 20160316
